FAERS Safety Report 16108527 (Version 1)
Quarter: 2019Q1

REPORT INFORMATION
  Report Type: Spontaneous
  Country: IL (occurrence: IL)
  Receive Date: 20190323
  Receipt Date: 20190323
  Transmission Date: 20190418
  Serious: Yes (Other)
  Sender: FDA-Public Use
  Company Number: IL-AMGEN-ISRSP2019044206

PATIENT
  Age: 68 Year
  Sex: Female

DRUGS (13)
  1. PROLIA [Suspect]
     Active Substance: DENOSUMAB
     Indication: OSTEOPOROSIS
     Dosage: 30 MILLIGRAM, Q4MO
     Route: 058
  2. NOVORAPID [Concomitant]
     Active Substance: INSULIN ASPART
     Dosage: FOR MEALS
  3. CO-DIOVAN [Concomitant]
     Active Substance: HYDROCHLOROTHIAZIDE\VALSARTAN
     Dosage: 80/12.5
  4. KAYEXALATE [Concomitant]
     Active Substance: SODIUM POLYSTYRENE SULFONATE
  5. INSULIN [Concomitant]
     Active Substance: INSULIN NOS
     Dosage: BOLUS
  6. VITAMIN D [Concomitant]
     Active Substance: CHOLECALCIFEROL
  7. CREON [Concomitant]
     Active Substance: PANCRELIPASE AMYLASE\PANCRELIPASE LIPASE\PANCRELIPASE PROTEASE
  8. LANTON [Concomitant]
     Dosage: 30 MILLIGRAM, QD
  9. NORMOPRESAN [Concomitant]
     Dosage: 150 UNK, TID
  10. CALCIUM [Concomitant]
     Active Substance: CALCIUM
  11. CADEX [DOXAZOSIN MESILATE] [Concomitant]
     Dosage: 8 MILLIGRAM, BID
  12. LERCAPRESS [LERCANIDIPINE HYDROCHLORIDE] [Concomitant]
     Active Substance: ENALAPRIL MALEATE\LERCANIDIPINE HYDROCHLORIDE
     Dosage: 10 MILLIGRAM, BID
  13. TREGLUDEC [Concomitant]
     Active Substance: INSULIN DEGLUDEC
     Dosage: 8 UNIT (IN THE MORNING)

REACTIONS (2)
  - Off label use [Unknown]
  - Hormone refractory breast cancer [Unknown]

NARRATIVE: CASE EVENT DATE: 2019
